FAERS Safety Report 7211781-6 (Version None)
Quarter: 2011Q1

REPORT INFORMATION
  Report Type: 
  Country: None (occurrence: None)
  Receive Date: 20110105
  Receipt Date: 20101223
  Transmission Date: 20110831
  Serious: Yes (Other)
  Sender: FDA-Public Use
  Company Number: GB-GENENTECH-311841

PATIENT
  Age: 52 Year
  Sex: Female
  Weight: 95 kg

DRUGS (11)
  1. ENALAPRIL [Concomitant]
     Indication: PRODUCT USED FOR UNKNOWN INDICATION
     Dosage: UNK
  2. MINOCYCLINE [Concomitant]
     Indication: PRODUCT USED FOR UNKNOWN INDICATION
     Dosage: UNK
  3. NICOTINAMIDE [Concomitant]
     Indication: PRODUCT USED FOR UNKNOWN INDICATION
     Dosage: UNK
  4. IMMUNE GLOBULIN INTRAVENOUS (HUMAN) [Concomitant]
     Indication: ACQUIRED EPIDERMOLYSIS BULLOSA
     Dosage: 6 G, 5/WEEK
     Route: 058
     Dates: start: 20030523
  5. VIBRAMYCIN [Concomitant]
     Indication: PRODUCT USED FOR UNKNOWN INDICATION
     Dosage: UNK
     Route: 048
  6. FLIXONASE [Concomitant]
     Indication: PRODUCT USED FOR UNKNOWN INDICATION
     Dosage: UNK
     Route: 048
  7. NYSTATIN [Concomitant]
     Indication: PRODUCT USED FOR UNKNOWN INDICATION
     Dosage: UNK
     Route: 048
  8. CITALOPRAM [Concomitant]
     Indication: PRODUCT USED FOR UNKNOWN INDICATION
     Dosage: UNK
  9. PARACETAMOL [Concomitant]
     Indication: PRODUCT USED FOR UNKNOWN INDICATION
     Dosage: UNK
  10. RITUXIMAB [Suspect]
     Route: 042
     Dates: start: 20101203, end: 20101206
  11. RITUXIMAB [Suspect]
     Indication: EPIDERMOLYSIS BULLOSA
     Dosage: UNK
     Route: 042
     Dates: start: 20101126

REACTIONS (10)
  - PRURITUS [None]
  - BACK PAIN [None]
  - FLUSHING [None]
  - TYPE III IMMUNE COMPLEX MEDIATED REACTION [None]
  - NAUSEA [None]
  - VOMITING [None]
  - CHILLS [None]
  - ARTHRALGIA [None]
  - RASH ERYTHEMATOUS [None]
  - MUSCULOSKELETAL PAIN [None]
